FAERS Safety Report 5317997-8 (Version None)
Quarter: 2007Q2

REPORT INFORMATION
  Report Type: 
  Country: None (occurrence: None)
  Receive Date: 20070504
  Receipt Date: 20070504
  Transmission Date: 20071010
  Serious: Yes (Hospitalization)
  Sender: FDA-Public Use
  Company Number: None

PATIENT
  Age: 43 Year
  Sex: Male
  Weight: 63.9572 kg

DRUGS (2)
  1. PHENYTOIN [Suspect]
     Dosage: 1 GRAM X 1 IV
     Route: 042
     Dates: start: 20070125
  2. PHENYTOIN [Suspect]
     Dosage: SEE ATTACHED PO
     Route: 048

REACTIONS (2)
  - COORDINATION ABNORMAL [None]
  - NYSTAGMUS [None]
